FAERS Safety Report 8323159-2 (Version None)
Quarter: 2012Q2

REPORT INFORMATION
  Report Type: 
  Country: None (occurrence: None)
  Receive Date: 20120430
  Receipt Date: 20120424
  Transmission Date: 20120825
  Serious: Yes (Hospitalization)
  Sender: FDA-Public Use
  Company Number: US-ASTRAZENECA-2010SE60842

PATIENT
  Age: 54 Year
  Sex: Male

DRUGS (1)
  1. NEXIUM [Suspect]
     Route: 048

REACTIONS (5)
  - EATING DISORDER [None]
  - INTENTIONAL DRUG MISUSE [None]
  - ACCIDENT AT WORK [None]
  - TREATMENT NONCOMPLIANCE [None]
  - DYSPEPSIA [None]
